FAERS Safety Report 9828330 (Version 5)
Quarter: 2022Q3

REPORT INFORMATION
  Report Type: Report from Study
  Country: US (occurrence: US)
  Receive Date: 20140117
  Receipt Date: 20220821
  Transmission Date: 20221026
  Serious: Yes (Other)
  Sender: FDA-Public Use
  Company Number: US-GLAXOSMITHKLINE-A1040681A

PATIENT
  Sex: Female

DRUGS (1)
  1. ALBUTEROL SULFATE [Suspect]
     Active Substance: ALBUTEROL SULFATE
     Indication: Chronic obstructive pulmonary disease
     Dosage: UNKNOWN
     Route: 065

REACTIONS (6)
  - Atrial fibrillation [Unknown]
  - Sinusitis [Unknown]
  - Oxygen saturation decreased [Not Recovered/Not Resolved]
  - Bipolar disorder [Unknown]
  - Bronchitis [Unknown]
  - Asthenia [Unknown]
